FAERS Safety Report 10287321 (Version 2)
Quarter: 2014Q1

REPORT INFORMATION
  Report Type: Spontaneous
  Country: US (occurrence: None)
  Receive Date: 20120817
  Receipt Date: 20130815
  Transmission Date: 20141002
  Serious: Yes (Other)
  Sender: FDA-Public Use
  Company Number: ADR-2011-10201

PATIENT
  Age: 41 Year
  Sex: Male

DRUGS (2)
  1. LIORESAL [Suspect]
     Indication: MUSCLE SPASTICITY
     Route: 037
  2. MORPHINE [Concomitant]

REACTIONS (2)
  - Muscle spasticity [None]
  - Muscle spasms [None]
